APPROVED DRUG PRODUCT: METRONIDAZOLE
Active Ingredient: METRONIDAZOLE
Strength: 0.75%
Dosage Form/Route: GEL;VAGINAL
Application: A215610 | Product #001 | TE Code: AB
Applicant: ENCUBE ETHICALS PRIVATE LTD
Approved: Jun 16, 2023 | RLD: No | RS: Yes | Type: RX